FAERS Safety Report 11443814 (Version 5)
Quarter: 2015Q4

REPORT INFORMATION
  Report Type: Report from Study
  Country: JP (occurrence: JP)
  Receive Date: 20150901
  Receipt Date: 20151127
  Transmission Date: 20160304
  Serious: Yes (Other)
  Sender: FDA-Public Use
  Company Number: JP-AMGEN-JPNCT2015089069

PATIENT
  Age: 63 Year
  Sex: Male
  Weight: 61.3 kg

DRUGS (7)
  1. OXALIPLATIN. [Concomitant]
     Active Substance: OXALIPLATIN
     Indication: COLON CANCER
     Dosage: 140 MG, Q2WEEKS
     Route: 041
     Dates: start: 20150609, end: 20150831
  2. CALCIUM LEVOFOLINATE [Concomitant]
     Active Substance: LEVOLEUCOVORIN CALCIUM
     Indication: COLON CANCER
     Dosage: 350 MG, Q2WEEKS
     Route: 041
     Dates: start: 20150609, end: 20150831
  3. 5-FU                               /00098801/ [Concomitant]
     Active Substance: FLUOROURACIL
     Dosage: 200 MG/M2, Q2WEEKS
     Route: 040
     Dates: start: 20150708, end: 20150831
  4. PANITUMUMAB [Suspect]
     Active Substance: PANITUMUMAB
     Indication: COLON CANCER
     Dosage: 360 MG, Q2WEEKS
     Route: 041
     Dates: start: 20150609, end: 20150805
  5. 5-FU                               /00098801/ [Concomitant]
     Active Substance: FLUOROURACIL
     Dosage: 4200 MG, Q2WEEKS
     Route: 041
     Dates: start: 20150609, end: 20150624
  6. 5-FU                               /00098801/ [Concomitant]
     Active Substance: FLUOROURACIL
     Dosage: 2000 MG/M2, Q2WEEKS
     Route: 041
     Dates: start: 20150708, end: 20150831
  7. 5-FU                               /00098801/ [Concomitant]
     Active Substance: FLUOROURACIL
     Indication: COLON CANCER
     Dosage: 700 MG, Q2WEEKS
     Route: 040
     Dates: start: 20150609, end: 20150624

REACTIONS (9)
  - Stoma site haemorrhage [Recovered/Resolved]
  - Vision blurred [Unknown]
  - Nausea [Recovered/Resolved]
  - Stomatitis [Unknown]
  - Haemorrhage subcutaneous [Recovered/Resolved]
  - Dry skin [Unknown]
  - Diarrhoea [Unknown]
  - Paronychia [Unknown]
  - Dermatitis acneiform [Unknown]

NARRATIVE: CASE EVENT DATE: 20150627
